FAERS Safety Report 11838390 (Version 1)
Quarter: 2015Q4

REPORT INFORMATION
  Report Type: Spontaneous
  Country: US (occurrence: US)
  Receive Date: 20151215
  Receipt Date: 20151215
  Transmission Date: 20160305
  Serious: Yes (Life-Threatening, Hospitalization, Other)
  Sender: FDA-Public Use
  Company Number: US-GILEAD-2015-0187295

PATIENT
  Age: 66 Year
  Sex: Male
  Weight: 68.48 kg

DRUGS (20)
  1. KLOR-CON M20 [Concomitant]
     Active Substance: POTASSIUM CHLORIDE
     Dosage: 40 MEQ, BID
     Route: 048
  2. LASIX [Concomitant]
     Active Substance: FUROSEMIDE
     Dosage: 160 MG, BID
     Route: 048
  3. ALDACTONE [Concomitant]
     Active Substance: SPIRONOLACTONE
     Dosage: 25 MG, BID
     Route: 048
  4. OLYSIO [Suspect]
     Active Substance: SIMEPREVIR
     Indication: HEPATITIS C
     Dosage: 150 MG, QD
     Route: 048
     Dates: start: 20140311, end: 20140517
  5. SYNTHROID [Concomitant]
     Active Substance: LEVOTHYROXINE SODIUM
     Dosage: 50 MCG, QD
     Route: 048
  6. CELLCEPT [Concomitant]
     Active Substance: MYCOPHENOLATE MOFETIL\MYCOPHENOLATE MOFETIL HYDROCHLORIDE
     Dosage: 500 MG, BID
  7. ZORTRESS [Concomitant]
     Active Substance: EVEROLIMUS
     Dosage: 0.25 UNK, UNK
     Route: 048
  8. SOVALDI [Suspect]
     Active Substance: SOFOSBUVIR
     Indication: HEPATITIS C
     Dosage: 400 MG, QD
     Route: 048
     Dates: start: 20140311, end: 20140517
  9. ATORVASTATIN [Concomitant]
     Active Substance: ATORVASTATIN
     Dosage: 20 MG, QD
     Dates: start: 20140311, end: 201405
  10. DIURIL                             /00011801/ [Concomitant]
     Dosage: 250 MG, QD
     Route: 048
  11. KLOR-CON M20 [Concomitant]
     Active Substance: POTASSIUM CHLORIDE
     Dosage: 20 MEQ, QD
  12. PROCRIT [Concomitant]
     Active Substance: ERYTHROPOIETIN
     Dosage: 10000 IU, Q1WK
     Route: 058
  13. ZORTRESS [Concomitant]
     Active Substance: EVEROLIMUS
     Dosage: 0.5 MG, BID
     Route: 048
  14. ZYLOPRIM [Concomitant]
     Active Substance: ALLOPURINOL
     Dosage: 100 MG, QD
     Route: 048
  15. DEMADEX [Concomitant]
     Active Substance: TORSEMIDE
     Dosage: 100 MG, UNK
     Route: 048
  16. ATORVASTATIN [Concomitant]
     Active Substance: ATORVASTATIN
     Dosage: 40 MG, QD
     Dates: end: 20140311
  17. GLUCOTROL [Concomitant]
     Active Substance: GLIPIZIDE
     Dosage: 7.5 MG, BID
     Route: 048
  18. DESOWEN [Concomitant]
     Active Substance: DESONIDE
     Dosage: UNK, BID
     Route: 061
  19. NEURONTIN [Concomitant]
     Active Substance: GABAPENTIN
     Dosage: 100 MG, 3 X WEEK
     Route: 048
  20. BETAPACE [Concomitant]
     Active Substance: SOTALOL HYDROCHLORIDE
     Dosage: 80 MG, UNK
     Route: 048

REACTIONS (1)
  - Rhabdomyolysis [Unknown]

NARRATIVE: CASE EVENT DATE: 20150501
